FAERS Safety Report 15968542 (Version 1)
Quarter: 2019Q1

REPORT INFORMATION
  Report Type: Spontaneous
  Country: DE (occurrence: DE)
  Receive Date: 20190215
  Receipt Date: 20190215
  Transmission Date: 20190418
  Serious: Yes (Other)
  Sender: FDA-Public Use
  Company Number: DE-MYLANLABS-2019M1013306

PATIENT
  Sex: Female

DRUGS (1)
  1. BACLOFEN. [Suspect]
     Active Substance: BACLOFEN
     Indication: PRODUCT USED FOR UNKNOWN INDICATION

REACTIONS (6)
  - Overdose [Unknown]
  - Drug abuse [Unknown]
  - Myoclonus [Unknown]
  - Toxicity to various agents [Unknown]
  - Electroencephalogram abnormal [Unknown]
  - Organic brain syndrome [Unknown]
